FAERS Safety Report 10025597 (Version 1)
Quarter: 2014Q1

REPORT INFORMATION
  Report Type: Spontaneous
  Country: US (occurrence: None)
  Receive Date: 20140319
  Receipt Date: 20140319
  Transmission Date: 20141002
  Serious: Yes (Hospitalization)
  Sender: FDA-Public Use
  Company Number: None

PATIENT
  Age: 45 Year
  Sex: Female
  Weight: 57.8 kg

DRUGS (3)
  1. HALOPERIDOL [Suspect]
     Indication: DEVELOPMENTAL DELAY
     Route: 048
  2. QUETIAPINE [Suspect]
     Indication: DEVELOPMENTAL DELAY
     Dosage: QD TO BID
  3. CHLORPROMAZINE [Concomitant]

REACTIONS (1)
  - Hypothermia [None]
